FAERS Safety Report 5049126-2 (Version None)
Quarter: 2006Q3

REPORT INFORMATION
  Report Type: 
  Country: None (occurrence: None)
  Receive Date: 20060712
  Receipt Date: 20060307
  Transmission Date: 20061208
  Serious: No
  Sender: FDA-Public Use
  Company Number: US-GLAXOSMITHKLINE-A0596536A

PATIENT
  Age: 46 Year
  Sex: Female
  Weight: 78.6 kg

DRUGS (2)
  1. IMITREX [Suspect]
     Indication: MIGRAINE
     Dosage: 50MG UNKNOWN
     Route: 048
     Dates: end: 20060301
  2. NO CONCURRENT MEDICATION [Concomitant]

REACTIONS (6)
  - ADVERSE DRUG REACTION [None]
  - MIGRAINE [None]
  - PHARMACEUTICAL PRODUCT COMPLAINT [None]
  - STOMACH DISCOMFORT [None]
  - THERAPEUTIC RESPONSE DECREASED [None]
  - VOMITING [None]
